FAERS Safety Report 5492827-2 (Version None)
Quarter: 2007Q4

REPORT INFORMATION
  Report Type: 
  Country: None (occurrence: None)
  Receive Date: 20071019
  Receipt Date: 20071004
  Transmission Date: 20080405
  Serious: Yes (Hospitalization, Other)
  Sender: FDA-Public Use
  Company Number: 2007JP003018

PATIENT
  Age: 50 Year
  Sex: Male
  Weight: 69.8 kg

DRUGS (11)
  1. TACROLIMUS [Suspect]
     Indication: MYASTHENIA GRAVIS
     Dosage: 3 MG, ORAL; 2 MG, ORAL
     Route: 048
     Dates: end: 20051229
  2. TACROLIMUS [Suspect]
     Indication: MYASTHENIA GRAVIS
     Dosage: 3 MG, ORAL; 2 MG, ORAL
     Route: 048
     Dates: start: 20030911
  3. FAMOTIDINE [Suspect]
     Indication: GASTRITIS
     Dosage: 10 MG, ORAL
     Route: 048
     Dates: start: 20030812
  4. LOSARTAN POTASSIUM [Suspect]
     Indication: HYPERTENSION
     Dosage: 50 MG, ORAL
     Route: 048
     Dates: start: 20031009
  5. PREDNISOLONE [Concomitant]
  6. SULFASALAZINE [Concomitant]
  7. MESALAMINE [Concomitant]
  8. CEFOPERAZONE SODIUM/SULBACTAM SODIUM (CEFOPERAZONE SODIUM, SULBACTAM S [Concomitant]
  9. SOLUTIONS FOR PARENTERAL NUTRITION [Concomitant]
  10. SULTAMICILLIN (SULTAMICILLIN) [Concomitant]
  11. PREDNISONE [Concomitant]

REACTIONS (9)
  - COLITIS ULCERATIVE [None]
  - CONDITION AGGRAVATED [None]
  - DIABETES MELLITUS [None]
  - ERYSIPELAS [None]
  - FEELING HOT [None]
  - GLYCOSYLATED HAEMOGLOBIN INCREASED [None]
  - INFECTION [None]
  - MELAENA [None]
  - SWELLING [None]
